FAERS Safety Report 19436836 (Version 1)
Quarter: 2021Q2

REPORT INFORMATION
  Report Type: Spontaneous
  Country: US (occurrence: US)
  Receive Date: 20210618
  Receipt Date: 20210618
  Transmission Date: 20210717
  Serious: Yes (Other)
  Sender: FDA-Public Use
  Company Number: US-TEVA-2021-US-1923360

PATIENT
  Sex: Male

DRUGS (1)
  1. EPINEPHRINE 0.3 MG /0.3 ML INJECTION [Suspect]
     Active Substance: EPINEPHRINE
     Dosage: 0.3 MG /0.3 ML

REACTIONS (3)
  - Needle issue [Unknown]
  - Device malfunction [Unknown]
  - Injection site pain [Unknown]
